FAERS Safety Report 7352871-7 (Version None)
Quarter: 2011Q1

REPORT INFORMATION
  Report Type: 
  Country: None (occurrence: None)
  Receive Date: 20110315
  Receipt Date: 20110308
  Transmission Date: 20110831
  Serious: Yes (Other)
  Sender: FDA-Public Use
  Company Number: TR-ROCHE-764443

PATIENT
  Sex: Male
  Weight: 112 kg

DRUGS (5)
  1. IRINOTECAN [Concomitant]
     Dates: end: 20100414
  2. XELODA [Concomitant]
     Route: 065
     Dates: end: 20100410
  3. FLUOROURACIL [Concomitant]
     Dates: end: 20100414
  4. ALTUZAN [Suspect]
     Indication: COLON CANCER
     Route: 042
     Dates: start: 20091104, end: 20100410
  5. LEUCOVORIN CALCIUM [Concomitant]
     Dates: end: 20100414

REACTIONS (2)
  - BLOOD TRIGLYCERIDES INCREASED [None]
  - HYPERLIPIDAEMIA [None]
